FAERS Safety Report 9620799 (Version 2)
Quarter: 2013Q4

REPORT INFORMATION
  Report Type: Report from Study
  Country: RU (occurrence: RU)
  Receive Date: 20131015
  Receipt Date: 20131016
  Transmission Date: 20140711
  Serious: Yes (Other)
  Sender: FDA-Public Use
  Company Number: RU-ROCHE-1289150

PATIENT
  Age: 71 Year
  Sex: Female
  Weight: 60 kg

DRUGS (8)
  1. AVASTIN [Suspect]
     Indication: COLON CANCER
     Route: 065
     Dates: start: 20120914
  2. AVASTIN [Suspect]
     Indication: METASTASES TO LIVER
  3. XELODA [Suspect]
     Indication: COLON CANCER
     Dosage: 1-14DAYS
     Route: 065
     Dates: start: 20120914, end: 20130930
  4. XELODA [Suspect]
     Indication: METASTASES TO LIVER
  5. OXALIPLATIN [Concomitant]
     Indication: COLON CANCER
     Route: 065
     Dates: start: 20120914, end: 20130208
  6. OXALIPLATIN [Concomitant]
     Indication: METASTASES TO LIVER
  7. MITOMYCIN [Concomitant]
     Indication: COLON CANCER
     Route: 065
     Dates: start: 20130930
  8. MITOMYCIN [Concomitant]
     Indication: METASTASES TO LIVER

REACTIONS (1)
  - Disease progression [Not Recovered/Not Resolved]
